FAERS Safety Report 9924307 (Version 2)
Quarter: 2014Q1

REPORT INFORMATION
  Report Type: Spontaneous
  Country: JP (occurrence: JP)
  Receive Date: 20140226
  Receipt Date: 20140226
  Transmission Date: 20141002
  Serious: Yes (Hospitalization, Other)
  Sender: FDA-Public Use
  Company Number: JP-ACCORD-022072

PATIENT
  Age: 59 Year
  Sex: Male

DRUGS (1)
  1. DOCETAXEL [Suspect]
     Indication: ANGIOSARCOMA
     Dosage: MEASURING DAY/ CHEMOTHERAPY DURATION= 2 DAY/5 MONTH

REACTIONS (2)
  - Photosensitivity reaction [Unknown]
  - Porphyria non-acute [Unknown]
